FAERS Safety Report 8087672-8 (Version None)
Quarter: 2012Q1

REPORT INFORMATION
  Report Type: 
  Country: None (occurrence: None)
  Receive Date: 20120128
  Receipt Date: 20110410
  Transmission Date: 20120608
  Serious: No
  Sender: FDA-Public Use
  Company Number: US-ABBOTT-11P-163-0717918-00

PATIENT
  Age: 39 Year
  Sex: Female

DRUGS (11)
  1. ASACOL [Concomitant]
     Indication: COLITIS
  2. XANAX [Concomitant]
     Indication: PANIC ATTACK
     Dosage: 1-2 TABLETS DAILY AS NEEDED
  3. FLOVENT [Concomitant]
     Indication: PANIC ATTACK
  4. WOMEN'S MULTIVITAMIN [Concomitant]
     Indication: VITAMIN SUPPLEMENTATION
  5. PROTONIX [Concomitant]
     Indication: GASTROOESOPHAGEAL REFLUX DISEASE
  6. VICODIN [Concomitant]
     Indication: PAIN
     Dosage: X1 EVERY 4-6 HOURS AS NEEDED
  7. ZOLOFT [Concomitant]
     Indication: DEPRESSION
  8. FLOVENT [Concomitant]
     Indication: CHEST DISCOMFORT
     Dosage: ONE PUFF
  9. PROAIR HFA [Concomitant]
     Indication: PANIC ATTACK
     Dosage: AS NEEDED
  10. PROAIR HFA [Concomitant]
     Indication: CHEST DISCOMFORT
  11. HUMIRA [Suspect]
     Indication: COLITIS ULCERATIVE
     Dates: start: 20101201

REACTIONS (3)
  - MIGRAINE [None]
  - ARTHRALGIA [None]
  - HYPERTENSION [None]
